FAERS Safety Report 6233857-2 (Version None)
Quarter: 2009Q2

REPORT INFORMATION
  Report Type: 
  Country: None (occurrence: None)
  Receive Date: 20090618
  Receipt Date: 20090609
  Transmission Date: 20091009
  Serious: Yes (Hospitalization, Other)
  Sender: FDA-Public Use
  Company Number: CA-JNJFOC-20090302486

PATIENT
  Sex: Female
  Weight: 68.04 kg

DRUGS (2)
  1. REMICADE [Suspect]
     Indication: DRUG USE FOR UNKNOWN INDICATION
     Dosage: ^STOPPED APPROXIMATELY 4 YEARS AGO^
     Route: 042
  2. SALOFALK [Concomitant]
     Indication: CROHN'S DISEASE
     Dosage: DOSE ^500^

REACTIONS (11)
  - AMNESIA [None]
  - HYPOAESTHESIA [None]
  - IRITIS [None]
  - MUSCLE SPASMS [None]
  - PARAESTHESIA [None]
  - PARALYSIS [None]
  - SWOLLEN TONGUE [None]
  - TEMPOROMANDIBULAR JOINT SYNDROME [None]
  - TREMOR [None]
  - URTICARIA [None]
  - VISUAL ACUITY REDUCED [None]
